FAERS Safety Report 22806733 (Version 4)
Quarter: 2024Q1

REPORT INFORMATION
  Report Type: Report from Study
  Country: CA (occurrence: CA)
  Receive Date: 20230810
  Receipt Date: 20240201
  Transmission Date: 20240410
  Serious: Yes (Other)
  Sender: FDA-Public Use
  Company Number: CA-JNJFOC-20230654972

PATIENT
  Age: 33 Year
  Sex: Male
  Weight: 102 kg

DRUGS (1)
  1. REMICADE [Suspect]
     Active Substance: INFLIXIMAB
     Indication: Crohn^s disease
     Dosage: EXPIRY DATE- 30-NOV-2025. V2: EXPIRY DATE: MAR-2026, V 3: EXPIRY DATE: 30-APR-2026
     Route: 041

REACTIONS (4)
  - Ligament rupture [Not Recovered/Not Resolved]
  - Meniscus injury [Not Recovered/Not Resolved]
  - Post procedural haemorrhage [Recovered/Resolved]
  - Off label use [Unknown]

NARRATIVE: CASE EVENT DATE: 20230517
